FAERS Safety Report 6060174-6 (Version None)
Quarter: 2009Q1

REPORT INFORMATION
  Report Type: 
  Country: None (occurrence: None)
  Receive Date: 20090128
  Receipt Date: 20090122
  Transmission Date: 20090719
  Serious: Yes (Other)
  Sender: FDA-Public Use
  Company Number: CHPA2009US00820

PATIENT
  Age: 34 Year
  Sex: Female

DRUGS (4)
  1. VOLTAREN [Suspect]
     Indication: MUSCLE SPASMS
     Dosage: TID, TOPICAL
     Route: 061
     Dates: start: 20081223
  2. VOLTAREN [Suspect]
     Indication: NECK PAIN
     Dosage: TID, TOPICAL
     Route: 061
     Dates: start: 20081223
  3. ALBUTEROL [Concomitant]
  4. IMITREX ^GLAXO^ (SUMATRIPTAN) [Concomitant]

REACTIONS (7)
  - DRUG ADMINISTERED AT INAPPROPRIATE SITE [None]
  - HYPERSENSITIVITY [None]
  - OEDEMA PERIPHERAL [None]
  - PHARYNGEAL OEDEMA [None]
  - PRURITUS GENERALISED [None]
  - RASH GENERALISED [None]
  - SWOLLEN TONGUE [None]
